FAERS Safety Report 8488668-4 (Version None)
Quarter: 2012Q3

REPORT INFORMATION
  Report Type: 
  Country: None (occurrence: None)
  Receive Date: 20120705
  Receipt Date: 20120702
  Transmission Date: 20120928
  Serious: Yes (Other)
  Sender: FDA-Public Use
  Company Number: US-PFIZER INC-2012134177

PATIENT
  Sex: Female

DRUGS (8)
  1. ACIPHEX [Concomitant]
     Dosage: UNK
  2. LIPITOR [Suspect]
     Dosage: 10 MG, 1X/DAY
  3. METOPROLOL [Concomitant]
     Dosage: UNK
  4. METFORMIN [Concomitant]
     Dosage: UNK
  5. LISINOPRIL AND HYDROCHLOROTHIAZIDE [Concomitant]
     Dosage: UNK
  6. ACETYLSALICYLIC ACID [Concomitant]
     Dosage: UNK
  7. AMARYL [Concomitant]
     Dosage: UNK
  8. ACTOS [Concomitant]
     Dosage: UNK

REACTIONS (2)
  - FOOT OPERATION [None]
  - DIABETES MELLITUS [None]
